FAERS Safety Report 8207663-3 (Version None)
Quarter: 2012Q1

REPORT INFORMATION
  Report Type: 
  Country: None (occurrence: None)
  Receive Date: 20120314
  Receipt Date: 20120307
  Transmission Date: 20120608
  Serious: Yes (Hospitalization)
  Sender: FDA-Public Use
  Company Number: AU-JNJFOC-20100605257

PATIENT
  Sex: Male

DRUGS (26)
  1. PREDNISONE [Suspect]
     Route: 048
     Dates: start: 20100619, end: 20100620
  2. AMIODARONE HYDROCHLORIDE [Concomitant]
     Indication: ATRIAL FIBRILLATION
     Route: 048
  3. ALBUTEROL SULFATE AUTOHALER [Concomitant]
     Indication: ASTHMA
     Route: 055
  4. WARFARIN SODIUM [Concomitant]
     Indication: MYOCARDIAL ISCHAEMIA
     Route: 048
     Dates: start: 20091209
  5. CEFACLOR [Concomitant]
     Indication: LOWER RESPIRATORY TRACT INFECTION
     Route: 048
     Dates: start: 20100531, end: 20100609
  6. PREDNISONE [Suspect]
     Route: 048
     Dates: start: 20100621, end: 20100623
  7. PREDNISONE [Suspect]
     Route: 048
  8. ACETAMINOPHEN [Concomitant]
     Indication: OSTEOARTHRITIS
     Route: 048
     Dates: start: 20091001
  9. FUROSEMIDE [Concomitant]
     Indication: JOINT SWELLING
     Route: 048
     Dates: start: 20080201
  10. SPIRIVA [Concomitant]
     Indication: CHRONIC OBSTRUCTIVE PULMONARY DISEASE
     Route: 055
  11. PREDNISONE [Suspect]
     Indication: PROSTATE CANCER METASTATIC
     Route: 048
     Dates: start: 20100615, end: 20100618
  12. MELOXICAM [Concomitant]
     Indication: POLYMYALGIA RHEUMATICA
     Route: 048
     Dates: start: 20091001
  13. LIPITOR [Concomitant]
     Indication: HYPERCHOLESTEROLAEMIA
     Route: 048
     Dates: end: 20100401
  14. ABIRATERONE ACETATE [Suspect]
     Route: 048
     Dates: start: 20091125, end: 20100615
  15. FLUTICASONE PROPIONATE/SALMETEROL [Concomitant]
     Indication: CHRONIC OBSTRUCTIVE PULMONARY DISEASE
     Route: 055
  16. SPIRIVA [Concomitant]
     Indication: ASTHMA
     Route: 055
  17. ATACAND [Concomitant]
     Indication: HYPERTENSION
     Route: 048
  18. GOSERELIN ACETATE [Concomitant]
     Indication: PROSTATE CANCER
     Route: 058
     Dates: start: 20091125
  19. ACETAMINOPHEN [Concomitant]
     Indication: CANCER PAIN
     Route: 048
     Dates: start: 20091001
  20. FLUTICASONE PROPIONATE/SALMETEROL [Concomitant]
     Indication: ASTHMA
     Route: 055
  21. SLOW-K [Concomitant]
     Indication: PROPHYLAXIS
     Route: 048
     Dates: start: 20080201
  22. ABIRATERONE ACETATE [Suspect]
     Indication: PROSTATE CANCER METASTATIC
     Route: 048
     Dates: start: 20100618, end: 20100706
  23. PREDNISONE [Suspect]
     Route: 048
     Dates: start: 20091125
  24. WARFARIN SODIUM [Concomitant]
     Indication: ACUTE MYOCARDIAL INFARCTION
     Route: 048
     Dates: start: 20091209
  25. ALBUTEROL SULFATE AUTOHALER [Concomitant]
     Indication: CHRONIC OBSTRUCTIVE PULMONARY DISEASE
     Route: 055
  26. WARFARIN SODIUM [Concomitant]
     Indication: ATRIAL FIBRILLATION
     Route: 048
     Dates: start: 20091209

REACTIONS (2)
  - PNEUMONIA [None]
  - INFECTIVE EXACERBATION OF CHRONIC OBSTRUCTIVE AIRWAYS DISEASE [None]
